FAERS Safety Report 4524777-X (Version None)
Quarter: 2004Q4

REPORT INFORMATION
  Report Type: 
  Country: None (occurrence: None)
  Receive Date: 20041208
  Receipt Date: 20041124
  Transmission Date: 20050328
  Serious: No
  Sender: FDA-Public Use
  Company Number: SGB1-2004-00434

PATIENT
  Age: 26 Year
  Sex: Female

DRUGS (2)
  1. AGRYLIN [Suspect]
     Indication: THROMBOCYTOPENIA
     Dosage: SEE IMAGE
  2. HEPARIN [Concomitant]

REACTIONS (6)
  - CAESAREAN SECTION [None]
  - DRUG EXPOSURE DURING PREGNANCY [None]
  - PLATELET COUNT INCREASED [None]
  - PRE-ECLAMPSIA [None]
  - PREGNANCY [None]
  - PREMATURE BABY [None]
